FAERS Safety Report 23367436 (Version 1)
Quarter: 2024Q1

REPORT INFORMATION
  Report Type: Spontaneous
  Country: US (occurrence: US)
  Receive Date: 20240104
  Receipt Date: 20240104
  Transmission Date: 20240410
  Serious: Yes (Hospitalization, Other)
  Sender: FDA-Public Use
  Company Number: US-BRISTOL-MYERS SQUIBB COMPANY-2024-000762

PATIENT
  Age: 65 Year
  Sex: Male
  Weight: 80.739 kg

DRUGS (2)
  1. ELIQUIS [Suspect]
     Active Substance: APIXABAN
     Indication: Product used for unknown indication
     Route: 048
     Dates: start: 20230320
  2. METOPROLOL [Concomitant]
     Active Substance: METOPROLOL
     Indication: Product used for unknown indication

REACTIONS (4)
  - Ventricular arrhythmia [Unknown]
  - Ejection fraction decreased [Unknown]
  - Cardiomyopathy [Unknown]
  - Cardiac stress test abnormal [Unknown]

NARRATIVE: CASE EVENT DATE: 20230101
